FAERS Safety Report 7717716-1 (Version None)
Quarter: 2011Q3

REPORT INFORMATION
  Report Type: 
  Country: None (occurrence: None)
  Receive Date: 20110824
  Receipt Date: 20110809
  Transmission Date: 20111222
  Serious: Yes (Hospitalization, Disabling, Other)
  Sender: FDA-Public Use
  Company Number: 2010MA004212

PATIENT
  Sex: Female
  Weight: 99.7913 kg

DRUGS (51)
  1. LASIX [Concomitant]
  2. LORAZEPAM [Concomitant]
  3. ISOSORBIDE MONONITRATE [Concomitant]
  4. FIBER CON [Concomitant]
  5. ANTIBIOTICS [Concomitant]
  6. BACITRACIN [Concomitant]
  7. ADVAIR DISKUS 100/50 [Concomitant]
  8. EVISTA [Concomitant]
  9. BUMEX [Concomitant]
  10. LISINOPRIL [Concomitant]
  11. ZOCOR [Concomitant]
  12. AMBIEN [Concomitant]
  13. PRILOSEC [Concomitant]
  14. ACTICOAT [Concomitant]
  15. FENTANYL-100 [Concomitant]
  16. LANTUS [Concomitant]
  17. CALCITRIOL [Concomitant]
  18. METOCLOPRAMIDE [Suspect]
     Indication: NAUSEA
     Dosage: 10 MG;TID;PO
     Route: 048
     Dates: start: 20081101, end: 20090101
  19. TOPROL-XL [Concomitant]
  20. NITROGLYCERIN [Concomitant]
  21. ASPIRIN [Concomitant]
  22. PROZAC [Concomitant]
  23. NEURONTIN [Concomitant]
  24. PROTONIX [Concomitant]
  25. SKELAXIN [Concomitant]
  26. SPIRONOLACTONE [Concomitant]
  27. COREG [Concomitant]
  28. MIRALAX [Concomitant]
  29. RENAL SOFT GEL [Concomitant]
  30. BACTRIM DS [Concomitant]
  31. MYCELEX [Concomitant]
  32. OS-CAL [Concomitant]
  33. POTASSIUM CHLORIDE [Concomitant]
  34. ATIVAN [Concomitant]
  35. PLAVIX [Concomitant]
  36. HUMALOG [Concomitant]
  37. NYSTATIN [Concomitant]
  38. ROCEPHIN [Concomitant]
  39. VANCOMYCIN [Concomitant]
  40. ALLOPURINOL [Concomitant]
  41. LOMOTIL [Concomitant]
  42. HYDROCODONE BITARTRATE AND ACETAMINOPHEN [Concomitant]
  43. SENOKOT [Concomitant]
  44. TYLENOL-500 [Concomitant]
  45. DOXYCYCLINE [Concomitant]
  46. LEVAQUIN [Concomitant]
  47. CEFTIN [Concomitant]
  48. AVELOX [Concomitant]
  49. LIPITOR [Concomitant]
  50. ALBUTEROL SULFATE AUTOHALER [Concomitant]
  51. FERROUS SULFATE TAB [Concomitant]

REACTIONS (62)
  - DIZZINESS [None]
  - HAEMORRHOIDS [None]
  - MITRAL VALVE SCLEROSIS [None]
  - AORTIC ARTERIOSCLEROSIS [None]
  - CATARACT [None]
  - WOUND INFECTION [None]
  - STAPHYLOCOCCAL INFECTION [None]
  - BLOOD GLUCOSE INCREASED [None]
  - FALL [None]
  - CELLULITIS [None]
  - HYPERGLYCAEMIA [None]
  - VOMITING [None]
  - AORTIC VALVE INCOMPETENCE [None]
  - PNEUMONIA [None]
  - VERTIGO POSITIONAL [None]
  - GAIT DISTURBANCE [None]
  - TYPE 2 DIABETES MELLITUS [None]
  - HEADACHE [None]
  - DYSPNOEA EXERTIONAL [None]
  - HEAD INJURY [None]
  - HYPERHIDROSIS [None]
  - NEURALGIA [None]
  - ACUTE PULMONARY OEDEMA [None]
  - RENAL FAILURE ACUTE [None]
  - BRONCHITIS [None]
  - CARDIAC FAILURE CONGESTIVE [None]
  - MENTAL STATUS CHANGES [None]
  - CONFUSIONAL STATE [None]
  - OSTEOPOROSIS [None]
  - ASTHENIA [None]
  - TREMOR [None]
  - DYSARTHRIA [None]
  - CONCUSSION [None]
  - DECUBITUS ULCER [None]
  - CHRONIC OBSTRUCTIVE PULMONARY DISEASE [None]
  - OBESITY [None]
  - MACULAR DEGENERATION [None]
  - TRICUSPID VALVE INCOMPETENCE [None]
  - VOLVULUS [None]
  - NAUSEA [None]
  - DIABETIC NEUROPATHY [None]
  - ABDOMINAL PAIN [None]
  - DIARRHOEA [None]
  - DRY MOUTH [None]
  - NEUROPATHY PERIPHERAL [None]
  - ABASIA [None]
  - BLINDNESS [None]
  - ISCHAEMIC CARDIOMYOPATHY [None]
  - TARDIVE DYSKINESIA [None]
  - LETHARGY [None]
  - DEPRESSION [None]
  - CORONARY ARTERY DISEASE [None]
  - IRRITABLE BOWEL SYNDROME [None]
  - TENDERNESS [None]
  - SYNCOPE [None]
  - MYOCARDIAL INFARCTION [None]
  - DYSKINESIA [None]
  - BURNING SENSATION [None]
  - RENAL FAILURE CHRONIC [None]
  - GOUT [None]
  - PAIN IN EXTREMITY [None]
  - SCOLIOSIS [None]
